FAERS Safety Report 13438143 (Version 2)
Quarter: 2017Q3

REPORT INFORMATION
  Report Type: Spontaneous
  Country: GB (occurrence: GB)
  Receive Date: 20170413
  Receipt Date: 20170816
  Transmission Date: 20171127
  Serious: Yes (Other)
  Sender: FDA-Public Use
  Company Number: GB-TEVA-756616ACC

PATIENT
  Age: 59 Year
  Sex: Female
  Weight: 58.96 kg

DRUGS (1)
  1. FEMSEVEN CONTI [Suspect]
     Active Substance: ESTRADIOL HEMIHYDRATE\LEVONORGESTREL
     Indication: MENOPAUSAL SYMPTOMS
     Route: 062
     Dates: start: 20150201

REACTIONS (3)
  - Product adhesion issue [Unknown]
  - Vaginal discharge [Recovered/Resolved]
  - Metrorrhagia [Not Recovered/Not Resolved]

NARRATIVE: CASE EVENT DATE: 20150201
